FAERS Safety Report 7943542-4 (Version None)
Quarter: 2011Q4

REPORT INFORMATION
  Report Type: 
  Country: None (occurrence: None)
  Receive Date: 20111128
  Receipt Date: 20111118
  Transmission Date: 20120403
  Serious: Yes (Other)
  Sender: FDA-Public Use
  Company Number: PHHY2011GB101608

PATIENT
  Age: 50 Year
  Sex: Male

DRUGS (13)
  1. CITALOPRAM HYDROBROMIDE [Suspect]
     Dosage: 40 MG, UNK
     Dates: start: 20070801, end: 20080401
  2. EFFEXOR XR [Suspect]
     Dosage: 2 MG, QD
     Dates: start: 20081115, end: 20081121
  3. EFFEXOR [Suspect]
     Dosage: 75 MG, QD
     Dates: start: 20080429, end: 20080508
  4. CITALOPRAM HYDROBROMIDE [Suspect]
     Indication: ANXIETY
     Dosage: 20 MG, UNK
     Dates: start: 20070101, end: 20070801
  5. EFFEXOR XR [Suspect]
     Dosage: 75 MG, BID
     Dates: start: 20080606, end: 20081106
  6. EFFEXOR XR [Suspect]
     Dosage: 75 MG, QD
     Dates: start: 20081107, end: 20081114
  7. EFFEXOR [Suspect]
     Dosage: 112.5 MG, QD
     Dates: start: 20080509, end: 20080528
  8. OLANZAPINE [Concomitant]
     Indication: ANXIETY
     Dates: start: 20081101
  9. IMIPRAMINE [Concomitant]
     Indication: ANXIETY
     Dates: start: 20081101
  10. EFFEXOR [Suspect]
     Indication: ANXIETY
     Dosage: 37.5 MG, QD
     Dates: start: 20080421, end: 20080428
  11. DIAZEPAM [Concomitant]
     Indication: ANXIETY
     Dates: start: 20080421, end: 20081101
  12. FLUOXETINE [Concomitant]
     Indication: ANXIETY
     Dates: start: 20081101
  13. EFFEXOR [Suspect]
     Dosage: 187.5 MG, QD
     Dates: start: 20080529, end: 20080605

REACTIONS (22)
  - CEREBELLAR SYNDROME [None]
  - APHAGIA [None]
  - MUSCLE SPASMS [None]
  - FALL [None]
  - SALIVARY HYPERSECRETION [None]
  - DYSARTHRIA [None]
  - APHASIA [None]
  - DYSPHAGIA [None]
  - COORDINATION ABNORMAL [None]
  - GAIT DISTURBANCE [None]
  - EMOTIONAL DISTRESS [None]
  - ASTHENIA [None]
  - POOR QUALITY SLEEP [None]
  - TEARFULNESS [None]
  - EYE MOVEMENT DISORDER [None]
  - APATHY [None]
  - DECREASED APPETITE [None]
  - DEMENTIA [None]
  - CLUMSINESS [None]
  - BALANCE DISORDER [None]
  - SPEECH DISORDER [None]
  - WEIGHT DECREASED [None]
